FAERS Safety Report 11143715 (Version 3)
Quarter: 2015Q3

REPORT INFORMATION
  Report Type: Spontaneous
  Country: US (occurrence: US)
  Receive Date: 20150526
  Receipt Date: 20150716
  Transmission Date: 20151125
  Serious: Yes (Hospitalization)
  Sender: FDA-Public Use
  Company Number: US-CELGENE-USA-2015053817

PATIENT
  Sex: Male
  Weight: 85.7 kg

DRUGS (2)
  1. VIDAZA [Suspect]
     Active Substance: AZACITIDINE
     Indication: MYELODYSPLASTIC SYNDROME
     Route: 065
     Dates: start: 20150429, end: 20150505
  2. VIDAZA [Suspect]
     Active Substance: AZACITIDINE
     Indication: THROMBOCYTOPENIA

REACTIONS (3)
  - Facial bones fracture [Recovering/Resolving]
  - Hypoxia [Recovered/Resolved]
  - Fall [Recovered/Resolved]

NARRATIVE: CASE EVENT DATE: 20150507
